FAERS Safety Report 23906274 (Version 1)
Quarter: 2024Q2

REPORT INFORMATION
  Report Type: Spontaneous
  Country: JP (occurrence: JP)
  Receive Date: 20240528
  Receipt Date: 20240528
  Transmission Date: 20240716
  Serious: Yes (Hospitalization)
  Sender: FDA-Public Use
  Company Number: JP-HALEON-2176877

PATIENT
  Age: 71 Year
  Sex: Female
  Weight: 55.3 kg

DRUGS (9)
  1. DICLOFENAC SODIUM [Suspect]
     Active Substance: DICLOFENAC\DICLOFENAC SODIUM
     Indication: Nephrogenic diabetes insipidus
  2. DICLOFENAC SODIUM [Suspect]
     Active Substance: DICLOFENAC\DICLOFENAC SODIUM
  3. DICLOFENAC SODIUM [Suspect]
     Active Substance: DICLOFENAC\DICLOFENAC SODIUM
  4. TRICHLORMETHIAZIDE [Concomitant]
     Active Substance: TRICHLORMETHIAZIDE
  5. Desmopressin (DDAVP) [Concomitant]
  6. Desmopressin (DDAVP) [Concomitant]
  7. Desmopressin (DDAVP) [Concomitant]
  8. Desmopressin (DDAVP) [Concomitant]
  9. Desmopressin (DDAVP) [Concomitant]

REACTIONS (2)
  - Blood creatinine increased [Unknown]
  - Glomerular filtration rate decreased [Unknown]
